FAERS Safety Report 10509635 (Version 3)
Quarter: 2014Q4

REPORT INFORMATION
  Report Type: Spontaneous
  Country: GR (occurrence: GR)
  Receive Date: 20141010
  Receipt Date: 20141021
  Transmission Date: 20150528
  Serious: Yes (Other)
  Sender: FDA-Public Use
  Company Number: GR-AMGEN-GRCSP2014073795

PATIENT
  Age: 76 Year
  Sex: Female

DRUGS (1)
  1. PROLIA [Suspect]
     Active Substance: DENOSUMAB
     Indication: OSTEOPOROSIS
     Dosage: 60 MG, Q6MO
     Route: 065
     Dates: start: 2013

REACTIONS (5)
  - Herpes virus infection [Unknown]
  - Rash [Unknown]
  - Eczema [Not Recovered/Not Resolved]
  - Staphylococcal infection [Unknown]
  - Erythema nodosum [Recovered/Resolved]
